FAERS Safety Report 9305729 (Version 2)
Quarter: 2014Q2

REPORT INFORMATION
  Report Type: Spontaneous
  Country: US (occurrence: None)
  Receive Date: 20130111
  Receipt Date: 20140407
  Transmission Date: 20141212
  Serious: Yes (Hospitalization)
  Sender: FDA-Public Use
  Company Number: 2012US000730

PATIENT
  Age: 44 Year
  Sex: Male
  Weight: 118.5 kg

DRUGS (15)
  1. PONATINIB (AP24534) TABLET [Suspect]
     Indication: CHRONIC MYELOID LEUKAEMIA
     Route: 048
     Dates: start: 20110331, end: 20120718
  2. KEFLEX (CEFALEXIN) [Concomitant]
  3. DILAUDID (HYDROMORPHONE HYDROCHLORIDE) [Concomitant]
  4. BACTRIM DS (SULFAMETHOXAZOLE, TRIMETHOPRIM) [Concomitant]
  5. VALIUM (DIAZEPAM) [Concomitant]
  6. ZOFRAN (ONDANSETRON) [Concomitant]
  7. OXYCODONE [Concomitant]
  8. BENADRYL (DIPHENHYDRAMINE HYDROCHLORIDE) [Concomitant]
  9. CLONIDINE [Concomitant]
  10. ASPIRIN [Concomitant]
  11. ZANAFLEX (TIZANIDINE HYDROCHLORIDE) [Concomitant]
  12. LEXAPRO (ESCITALOPRAM OXALATE) [Concomitant]
  13. ZANTAC (RANITIDINE HYDROCHLORIDE) [Concomitant]
  14. LISINOPRIL [Concomitant]
  15. ZIAC [Concomitant]

REACTIONS (12)
  - Chest pain [None]
  - Pancreatic enzymes increased [None]
  - Burning sensation [None]
  - Nausea [None]
  - Dizziness [None]
  - Blood glucose increased [None]
  - Blood creatinine increased [None]
  - Bradycardia [None]
  - Electrocardiogram ST-T change [None]
  - Blood alkaline phosphatase increased [None]
  - Alanine aminotransferase increased [None]
  - Aspartate aminotransferase increased [None]
